FAERS Safety Report 8137334-3 (Version None)
Quarter: 2012Q1

REPORT INFORMATION
  Report Type: 
  Country: None (occurrence: None)
  Receive Date: 20120103
  Receipt Date: 20110914
  Transmission Date: 20120608
  Serious: No
  Sender: FDA-Public Use
  Company Number: AE-2011-001553

PATIENT
  Age: 43 Year
  Sex: Female
  Weight: 97.5234 kg

DRUGS (7)
  1. PEGASYS [Concomitant]
  2. INCIVEK [Suspect]
     Dosage: 2250 MG (750 MG, 1 IN 8 HR), ORAL
     Route: 048
     Dates: start: 20110715
  3. METOPROLOL TARTRATE [Concomitant]
  4. RIBASPHERE [Concomitant]
  5. LISINOPRIL HZTZ (LISINOPRIL) [Concomitant]
  6. PRILOSEC [Concomitant]
  7. METFORMIN HCL [Concomitant]

REACTIONS (3)
  - SKIN EXFOLIATION [None]
  - RASH PRURITIC [None]
  - SKIN BURNING SENSATION [None]
